FAERS Safety Report 15147010 (Version 1)
Quarter: 2018Q3

REPORT INFORMATION
  Report Type: Spontaneous
  Country: IN (occurrence: IN)
  Receive Date: 20180716
  Receipt Date: 20180716
  Transmission Date: 20181010
  Serious: Yes (Other)
  Sender: FDA-Public Use
  Company Number: IN-SUN PHARMACEUTICAL INDUSTRIES LTD-2018R1-177806

PATIENT
  Age: 49 Year
  Sex: Female

DRUGS (2)
  1. LUPRIDE DEPOT [Suspect]
     Active Substance: LEUPROLIDE ACETATE
     Indication: UTERINE HAEMORRHAGE
     Dosage: UNK UNK, MONTHLY
     Route: 065
     Dates: start: 20180417
  2. LUPRIDE DEPOT [Suspect]
     Active Substance: LEUPROLIDE ACETATE
     Indication: DYSMENORRHOEA

REACTIONS (1)
  - Drug ineffective [Unknown]

NARRATIVE: CASE EVENT DATE: 20180627
